FAERS Safety Report 8935721 (Version 1)
Quarter: 2012Q4

REPORT INFORMATION
  Report Type: 
  Country: BR (occurrence: BR)
  Receive Date: 20121130
  Receipt Date: 20121130
  Transmission Date: 20130627
  Serious: Yes (Other)
  Sender: FDA-Public Use
  Company Number: BR-SANOFI-AVENTIS-2012SA085717

PATIENT
  Age: 29 Year
  Sex: Female
  Weight: 60 kg

DRUGS (3)
  1. CLEXANE [Suspect]
     Indication: THROMBOPHILIA
     Dosage: strength: 40mg Injectable solution
     Route: 058
     Dates: start: 201112, end: 20120110
  2. ACETYLSALICYLIC ACID [Concomitant]
     Indication: COAGULATION DISORDER
     Dosage: dose: 1 tab (every morning)
     Route: 048
     Dates: end: 201112
  3. DEXAMETHASONE [Concomitant]
     Dosage: indication: To potentiate the effect of the other drugs
     Route: 048
     Dates: end: 201201

REACTIONS (3)
  - Abortion [Recovered/Resolved]
  - Anaemia [Recovered/Resolved]
  - Exposure during pregnancy [Recovered/Resolved]
